FAERS Safety Report 6037561-5 (Version None)
Quarter: 2009Q1

REPORT INFORMATION
  Report Type: 
  Country: None (occurrence: None)
  Receive Date: 20090113
  Receipt Date: 20090106
  Transmission Date: 20090719
  Serious: Yes (Other)
  Sender: FDA-Public Use
  Company Number: CHPA2009US00481

PATIENT
  Age: 72 Year
  Sex: Male
  Weight: 88.4 kg

DRUGS (1)
  1. FERROUS SULFATE TAB [Suspect]
     Indication: HAEMOGLOBIN DECREASED
     Dosage: 160 MG, QD, ORAL
     Route: 048
     Dates: start: 20090103, end: 20090105

REACTIONS (1)
  - BLOOD GLUCOSE DECREASED [None]
